FAERS Safety Report 12093736 (Version 1)
Quarter: 2016Q1

REPORT INFORMATION
  Report Type: Spontaneous
  Country: CA (occurrence: CA)
  Receive Date: 20160219
  Receipt Date: 20160219
  Transmission Date: 20160526
  Serious: Yes (Other)
  Sender: FDA-Public Use
  Company Number: CA-PFIZER INC-2016090284

PATIENT
  Age: 28 Year
  Sex: Male
  Weight: 73 kg

DRUGS (1)
  1. CHAMPIX [Suspect]
     Active Substance: VARENICLINE TARTRATE
     Indication: SMOKING CESSATION THERAPY
     Dosage: UNK, 1X/DAY
     Route: 048

REACTIONS (3)
  - Violence-related symptom [Unknown]
  - Antisocial behaviour [Unknown]
  - Indifference [Unknown]
